FAERS Safety Report 10592944 (Version 2)
Quarter: 2014Q4

REPORT INFORMATION
  Report Type: Report from Study
  Country: JP (occurrence: JP)
  Receive Date: 20141119
  Receipt Date: 20141126
  Transmission Date: 20150529
  Serious: Yes (Death)
  Sender: FDA-Public Use
  Company Number: JP-PFIZER INC-2014314552

PATIENT

DRUGS (2)
  1. CISPLATIN. [Suspect]
     Active Substance: CISPLATIN
     Indication: SMALL CELL LUNG CANCER
     Dosage: 60 MG/M2, CYCLIC ON DAY 1 EVERY 3-4 WEEKS FOR THREE CYCLES
     Route: 042
  2. IRINOTECAN HCL [Suspect]
     Active Substance: IRINOTECAN HYDROCHLORIDE
     Indication: SMALL CELL LUNG CANCER
     Dosage: 60 MG/M2, CYCLIC ON DAYS 1, 8, 15 EVERY 3-4 WEEKS FOR THREE CYCLES

REACTIONS (1)
  - Cerebral infarction [Fatal]
